FAERS Safety Report 13854406 (Version 3)
Quarter: 2017Q4

REPORT INFORMATION
  Report Type: Report from Study
  Country: US (occurrence: US)
  Receive Date: 20170809
  Receipt Date: 20171003
  Transmission Date: 20180320
  Serious: Yes (Other)
  Sender: FDA-Public Use
  Company Number: US-JAZZ-2017-US-009905

PATIENT
  Age: 54 Year
  Sex: Female

DRUGS (34)
  1. CRESTOR [Concomitant]
     Active Substance: ROSUVASTATIN CALCIUM
  2. LIPITOR [Concomitant]
     Active Substance: ATORVASTATIN CALCIUM
  3. PROVIGIL [Concomitant]
     Active Substance: MODAFINIL
  4. TRULICITY [Concomitant]
     Active Substance: DULAGLUTIDE
  5. LOSARTAN AND HYDROCHLOROTHIAZIDE [Concomitant]
     Active Substance: HYDROCHLOROTHIAZIDE\LOSARTAN POTASSIUM
  6. REMICADE [Concomitant]
     Active Substance: INFLIXIMAB
  7. CALCIUM CARBONATE. [Concomitant]
     Active Substance: CALCIUM CARBONATE
  8. FORTEO [Concomitant]
     Active Substance: TERIPARATIDE
  9. RELPAX [Concomitant]
     Active Substance: ELETRIPTAN HYDROBROMIDE
  10. XYREM [Suspect]
     Active Substance: SODIUM OXYBATE
     Indication: NARCOLEPSY
     Dosage: 4 G, BID
     Route: 048
     Dates: start: 200706, end: 200712
  11. XYREM [Suspect]
     Active Substance: SODIUM OXYBATE
     Indication: CATAPLEXY
     Dosage: DOSE ADJUSTMENT
     Route: 048
     Dates: start: 200712, end: 201206
  12. AMARYL [Concomitant]
     Active Substance: GLIMEPIRIDE
  13. CYTOMEL [Concomitant]
     Active Substance: LIOTHYRONINE SODIUM
  14. MORPHINE SULFATE. [Concomitant]
     Active Substance: MORPHINE SULFATE
  15. XYREM [Suspect]
     Active Substance: SODIUM OXYBATE
     Dosage: 5 G, QD SECOND DOSE
     Route: 048
     Dates: start: 201206
  16. FENOFIBRATE. [Concomitant]
     Active Substance: FENOFIBRATE
  17. FENTANYL. [Concomitant]
     Active Substance: FENTANYL
  18. METHOTREXATE (METHOTREXATE SODIUM) [Concomitant]
     Active Substance: METHOTREXATE SODIUM
  19. ZANAFLEX [Concomitant]
     Active Substance: TIZANIDINE HYDROCHLORIDE
  20. ZOFRAN [Concomitant]
     Active Substance: ONDANSETRON HYDROCHLORIDE
  21. ABILIFY [Concomitant]
     Active Substance: ARIPIPRAZOLE
  22. BYETTA [Concomitant]
     Active Substance: EXENATIDE
  23. VITAMIN D                          /00107901/ [Concomitant]
     Active Substance: ERGOCALCIFEROL
  24. XYREM [Suspect]
     Active Substance: SODIUM OXYBATE
     Dosage: 6 G, QD FIRST DOSE
     Route: 048
     Dates: start: 201206
  25. ACTOS [Suspect]
     Active Substance: PIOGLITAZONE HYDROCHLORIDE
     Indication: PRODUCT USED FOR UNKNOWN INDICATION
     Dosage: UNK
     Dates: end: 201702
  26. NUCYNTA [Concomitant]
     Active Substance: TAPENTADOL HYDROCHLORIDE
  27. TRICOR                             /00090101/ [Concomitant]
     Active Substance: ADENOSINE
  28. SYNTHROID [Concomitant]
     Active Substance: LEVOTHYROXINE SODIUM
  29. ZETIA [Concomitant]
     Active Substance: EZETIMIBE
  30. VICTOZA [Concomitant]
     Active Substance: LIRAGLUTIDE
  31. LEXAPRO [Concomitant]
     Active Substance: ESCITALOPRAM OXALATE
  32. ADDERALL [Concomitant]
     Active Substance: AMPHETAMINE ASPARTATE\AMPHETAMINE SULFATE\DEXTROAMPHETAMINE SACCHARATE\DEXTROAMPHETAMINE SULFATE
  33. AMBIEN [Concomitant]
     Active Substance: ZOLPIDEM TARTRATE
  34. LIDODERM [Concomitant]
     Active Substance: LIDOCAINE

REACTIONS (10)
  - Swelling [Unknown]
  - Insomnia [Unknown]
  - Fatigue [Unknown]
  - Intentional product misuse [Unknown]
  - Cardiac murmur [Unknown]
  - Therapeutic response decreased [Unknown]
  - Road traffic accident [Recovered/Resolved]
  - Polyp [Unknown]
  - Arthritis [Unknown]
  - Extra dose administered [Unknown]

NARRATIVE: CASE EVENT DATE: 201702
